FAERS Safety Report 14773315 (Version 4)
Quarter: 2021Q1

REPORT INFORMATION
  Report Type: Report from Study
  Country: GB (occurrence: JP)
  Receive Date: 20180418
  Receipt Date: 20210323
  Transmission Date: 20210419
  Serious: Yes (Hospitalization, Other)
  Sender: FDA-Public Use
  Company Number: JP-ASTELLAS-2018US018004

PATIENT
  Age: 37 Year
  Sex: Female
  Weight: 50 kg

DRUGS (14)
  1. ERLOTINIB [Suspect]
     Active Substance: ERLOTINIB
     Route: 048
     Dates: start: 20180402, end: 20180529
  2. AZUNOL [GUAIAZULENE] [Concomitant]
     Active Substance: GUAIAZULENE
     Indication: PROPHYLAXIS
     Dosage: DOSAGE IS UNCERTAIN
     Route: 049
     Dates: start: 20170609
  3. HIRUDOID [Concomitant]
     Active Substance: GLYCOSAMINOGLYCANS
     Indication: PROPHYLAXIS
     Dosage: DOSAGE IS UNCERTAIN
     Route: 003
     Dates: start: 20170627
  4. FML [Concomitant]
     Active Substance: FLUOROMETHOLONE
     Indication: PRODUCT USED FOR UNKNOWN INDICATION
     Dosage: UNK, UNKNOWN FREQ.(DOSAGE IS UNCERTAIN)
     Route: 047
     Dates: start: 20180228
  5. PROTOPIC [Concomitant]
     Active Substance: TACROLIMUS
     Indication: PRODUCT USED FOR UNKNOWN INDICATION
     Dosage: UNK UNK, UNKNOWN FREQ.(DOSAGE IS UNCERTAIN)
     Route: 003
     Dates: start: 20180322
  6. ERLOTINIB [Suspect]
     Active Substance: ERLOTINIB
     Route: 048
     Dates: start: 20180129, end: 20180314
  7. ERLOTINIB [Suspect]
     Active Substance: ERLOTINIB
     Route: 048
     Dates: start: 20171228, end: 201801
  8. ANTEBATE [Concomitant]
     Active Substance: BETAMETHASONE DIPROPIONATE
     Indication: DERMATITIS ACNEIFORM
  9. NEO?MEDROL [METHYLPREDNISOLONE;NEOMYCIN SULFATE] [Concomitant]
     Indication: PRODUCT USED FOR UNKNOWN INDICATION
     Dosage: DOSAGE IS UNCERTAIN
     Route: 003
     Dates: start: 20171204
  10. SODIUM HYALURONATE [Concomitant]
     Active Substance: HYALURONATE SODIUM
     Indication: PRODUCT USED FOR UNKNOWN INDICATION
     Dosage: UNK, UNKNOWN FREQ.(DOSAGE IS UNCERTAIN)
     Route: 047
     Dates: start: 20171225
  11. ERLOTINIB [Suspect]
     Active Substance: ERLOTINIB
     Indication: LUNG ADENOCARCINOMA
     Route: 048
     Dates: start: 20170620, end: 201712
  12. MUCOSTA [Concomitant]
     Active Substance: REBAMIPIDE
     Indication: KERATITIS
     Dosage: UNK, UNKNOWN FREQ.(DOSAGE IS UNCERTAIN)
     Route: 047
     Dates: start: 20171225
  13. LOCOID [Concomitant]
     Active Substance: HYDROCORTISONE BUTYRATE
     Indication: PRODUCT USED FOR UNKNOWN INDICATION
     Dosage: UNK UNK, UNKNOWN FREQ.(DOSAGE IS UNCERTAIN)
     Route: 003
     Dates: start: 20170627, end: 20180322
  14. ANTEBATE [Concomitant]
     Active Substance: BETAMETHASONE DIPROPIONATE
     Indication: PARONYCHIA
     Dosage: UNK, UNKNOWN FREQ.(DOSAGE IS UNCERTAIN)
     Route: 003
     Dates: start: 20170714

REACTIONS (6)
  - Hepatic function abnormal [Unknown]
  - Blood alkaline phosphatase increased [Recovered/Resolved]
  - Alanine aminotransferase increased [Recovered/Resolved]
  - Dermatitis exfoliative generalised [Recovered/Resolved]
  - Aspartate aminotransferase increased [Recovered/Resolved]
  - Mucosal disorder [Recovered/Resolved]

NARRATIVE: CASE EVENT DATE: 20170712
